FAERS Safety Report 5132840-8 (Version None)
Quarter: 2006Q4

REPORT INFORMATION
  Report Type: 
  Country: None (occurrence: None)
  Receive Date: 20061023
  Receipt Date: 20060921
  Transmission Date: 20070319
  Serious: Yes (Other)
  Sender: FDA-Public Use
  Company Number: PHNR2006AU01299

PATIENT
  Sex: Female

DRUGS (2)
  1. GLEEVEC [Suspect]
     Indication: CHRONIC MYELOID LEUKAEMIA
     Dosage: 400 MG, UNK
     Dates: start: 20030301
  2. GLEEVEC [Suspect]
     Dosage: 100 MG, UNK
     Dates: end: 20060501

REACTIONS (1)
  - BONE MARROW FAILURE [None]
